FAERS Safety Report 9780730 (Version 2)
Quarter: 2014Q1

REPORT INFORMATION
  Report Type: Spontaneous
  Country: JP (occurrence: JP)
  Receive Date: 20131224
  Receipt Date: 20140101
  Transmission Date: 20141002
  Serious: Yes (Other)
  Sender: FDA-Public Use
  Company Number: PHHY2013JP150731

PATIENT
  Age: 42 Year
  Sex: Female

DRUGS (3)
  1. NEORAL [Suspect]
     Indication: PUSTULAR PSORIASIS
     Dosage: 100 MG, UNK
     Route: 048
     Dates: start: 20131213
  2. ALEVIATIN [Concomitant]
     Indication: EPILEPSY
     Dosage: 200 MG, UNK
     Route: 048
  3. SODIUM VALPROATE [Concomitant]
     Indication: EPILEPSY
     Dosage: 800 MG, UNK
     Route: 048

REACTIONS (1)
  - Epilepsy [Recovered/Resolved]
